FAERS Safety Report 4711960-3 (Version None)
Quarter: 2005Q2

REPORT INFORMATION
  Report Type: 
  Country: None (occurrence: None)
  Receive Date: 20050629
  Receipt Date: 20050311
  Transmission Date: 20051028
  Serious: No
  Sender: FDA-Public Use
  Company Number: 05P-163-0293671-00

PATIENT
  Age: 34 Year
  Sex: Female
  Weight: 63.5036 kg

DRUGS (5)
  1. HUMIRA [Suspect]
     Indication: RHEUMATOID ARTHRITIS
     Dosage: 40 MG, 1 IN 2 WK SUBCUTANEOUS
     Route: 058
     Dates: start: 20050210
  2. CLONAZEPAM [Concomitant]
  3. ESOMEPRAZOLE [Concomitant]
  4. DEXAMETHASONE [Concomitant]
  5. TRAZODONE [Concomitant]

REACTIONS (5)
  - BLOOD PRESSURE INCREASED [None]
  - CONDITION AGGRAVATED [None]
  - HOT FLUSH [None]
  - MIGRAINE [None]
  - WEIGHT INCREASED [None]
